FAERS Safety Report 16623590 (Version 1)
Quarter: 2019Q3

REPORT INFORMATION
  Report Type: Spontaneous
  Country: US (occurrence: US)
  Receive Date: 20190724
  Receipt Date: 20190724
  Transmission Date: 20191004
  Serious: No
  Sender: FDA-Public Use
  Company Number: US-ACCORD-068703

PATIENT
  Age: 87 Year
  Sex: Female
  Weight: 60.33 kg

DRUGS (4)
  1. TIZANIDINE. [Concomitant]
     Active Substance: TIZANIDINE
     Indication: PAIN
     Dosage: STRENGTH: 2 MG
  2. LYRICA [Concomitant]
     Active Substance: PREGABALIN
     Dosage: STRENGTH: 50 MG
  3. BUTALBITAL/CAFFEINE/PARACETAMOL [Concomitant]
     Indication: MIGRAINE
     Dosage: BUTALBITAL APAP 50/25/40
  4. AMITRIPTYLINE ACCORD [Suspect]
     Active Substance: AMITRIPTYLINE
     Indication: FIBROMYALGIA
     Dosage: STRENGTH: 10 MG, 2 IN THE MOONING, 2 AT LUNCH, 4 AT BEDTIME
     Route: 048
     Dates: start: 20180430

REACTIONS (4)
  - Drug ineffective [Unknown]
  - Product size issue [Unknown]
  - Muscle spasms [Unknown]
  - Product substitution issue [Unknown]
